FAERS Safety Report 16119720 (Version 6)
Quarter: 2019Q4

REPORT INFORMATION
  Report Type: Report from Study
  Country: IT (occurrence: IT)
  Receive Date: 20190326
  Receipt Date: 20191213
  Transmission Date: 20200122
  Serious: Yes (Hospitalization, Other)
  Sender: FDA-Public Use
  Company Number: PHHY2019IT066088

PATIENT
  Age: 61 Year
  Sex: Male
  Weight: 79 kg

DRUGS (9)
  1. TAFINLAR [Suspect]
     Active Substance: DABRAFENIB MESYLATE
     Dosage: 300 MG, UNK
     Route: 048
  2. DECADRON [Concomitant]
     Active Substance: DEXAMETHASONE
     Indication: METASTASES TO CENTRAL NERVOUS SYSTEM
     Dosage: 6 OT, UNK
     Route: 048
     Dates: start: 20181207, end: 20190218
  3. TRAMETINIB [Suspect]
     Active Substance: TRAMETINIB
     Dosage: 2 MG, UNK
     Route: 048
  4. SOLDESAM [Concomitant]
     Active Substance: DEXAMETHASONE
     Indication: METASTASES TO CENTRAL NERVOUS SYSTEM
     Dosage: 20 OT, UNK
     Route: 048
     Dates: start: 20190122, end: 20190208
  5. CEFTRIAXONE. [Concomitant]
     Active Substance: CEFTRIAXONE
     Indication: BACTERIAL INFECTION
     Dosage: 2 OT, UNK
     Route: 042
     Dates: start: 20190224, end: 20190304
  6. LANSOX [Concomitant]
     Active Substance: LANSOPRAZOLE
     Indication: PROPHYLAXIS
     Dosage: 30 OT, UNK
     Route: 048
     Dates: start: 20181207
  7. TAFINLAR [Suspect]
     Active Substance: DABRAFENIB MESYLATE
     Indication: METASTATIC MALIGNANT MELANOMA
     Dosage: 300 MG, UNK
     Route: 048
     Dates: start: 20181211
  8. TRAMETINIB [Suspect]
     Active Substance: TRAMETINIB
     Indication: METASTATIC MALIGNANT MELANOMA
     Dosage: 2 MG, UNK
     Route: 048
     Dates: start: 20181211
  9. KEPPRA [Concomitant]
     Active Substance: LEVETIRACETAM
     Indication: METASTASES TO CENTRAL NERVOUS SYSTEM
     Dosage: 500 OT, UNK
     Route: 048
     Dates: start: 20190108

REACTIONS (7)
  - Constipation [Recovered/Resolved]
  - Spinal pain [Not Recovered/Not Resolved]
  - Pyrexia [Recovered/Resolved]
  - Visual impairment [Not Recovered/Not Resolved]
  - Hallucination, visual [Recovered/Resolved]
  - Back pain [Recovered/Resolved]
  - Procalcitonin increased [Recovered/Resolved]

NARRATIVE: CASE EVENT DATE: 20190224
